FAERS Safety Report 23831296 (Version 1)
Quarter: 2024Q2

REPORT INFORMATION
  Report Type: Spontaneous
  Country: US (occurrence: None)
  Receive Date: 20240507
  Receipt Date: 20240507
  Transmission Date: 20240716
  Serious: Yes (Congenital Anomaly)
  Sender: FDA-Public Use
  Company Number: None

PATIENT
  Age: 0 Year
  Sex: Female
  Weight: 2.46 kg

DRUGS (4)
  1. FLUOXETINE [Suspect]
     Active Substance: FLUOXETINE HYDROCHLORIDE
     Dates: start: 20190911
  2. METHYLPHENIDATE [Suspect]
     Active Substance: METHYLPHENIDATE
     Dates: start: 20190911, end: 20200527
  3. CLINDAMYCIN [Concomitant]
     Active Substance: CLINDAMYCIN
  4. AZELAIC ACID [Concomitant]
     Active Substance: AZELAIC ACID

REACTIONS (8)
  - Small for dates baby [None]
  - Hypotonia [None]
  - Respiratory disorder [None]
  - Pulmonary congestion [None]
  - Amniotic cavity infection [None]
  - Infantile haemangioma [None]
  - Tethered oral tissue [None]
  - Polydactyly [None]

NARRATIVE: CASE EVENT DATE: 20200529
